FAERS Safety Report 4710336-2 (Version None)
Quarter: 2005Q3

REPORT INFORMATION
  Report Type: 
  Country: None (occurrence: None)
  Receive Date: 20050707
  Receipt Date: 20050624
  Transmission Date: 20060218
  Serious: Yes (Hospitalization, Other)
  Sender: FDA-Public Use
  Company Number: 2004031351

PATIENT
  Age: 55 Year
  Sex: Male

DRUGS (35)
  1. LIPITOR [Suspect]
     Indication: HYPERCHOLESTEROLAEMIA
     Dosage: 10 MG (1 IN 1 D), ORAL
     Route: 048
     Dates: start: 20031217
  2. AMLOIPINE BESILATE (AMLODIPINE) [Concomitant]
  3. NIFEDIPINE [Concomitant]
  4. TOCOPHERYL NICOTINATE (TOCOPHERYL NICOTINATE) [Concomitant]
  5. TEPRENONE (TEPRENONE) [Concomitant]
  6. CINAL (ASCORBIC ACID, CALCIUM PANTOTHENATE) [Concomitant]
  7. ISOSORBIDE DINITRATE [Concomitant]
  8. NICORANDIL (NICORANDIL) [Concomitant]
  9. GLYCERYL TRINITRATE (GLYCERYL TRINITRATE) [Concomitant]
  10. NIFEDIPINE [Concomitant]
  11. GLYCERYL TRINITRATE (GLYCERYL TRINITRATE) [Concomitant]
  12. PILSICAINIDE HYDROCHLORIDE (PILSICAINIDE HYDROCHLORIDE) [Concomitant]
  13. FLECAINIDE ACETATE [Concomitant]
  14. ETIZOLAM (ETIZOLAM) [Concomitant]
  15. FLUVOXAMINE MALEATE (FLUVOXAMINE MALEATE) [Concomitant]
  16. POLYCARBOPHIL CALCIUM (POLYCARBOPHIL CALCIUM) [Concomitant]
  17. LANSOPRAZOLE [Concomitant]
  18. MAGNESIUM OXIDE (MAGNESIUM OXIDE) [Concomitant]
  19. SENNOSIDES (SENNOSIDE A+B) [Concomitant]
  20. SODIUM PICOSULFATE (SODIUM PICOSULFATE) [Concomitant]
  21. GLYCERIN (GLYCERIN) [Concomitant]
  22. MECOBALAMIN (MECOBALAMIN) [Concomitant]
  23. LOXOPROFEN SODIUM (LOXOPROFEN SODIUM) [Concomitant]
  24. BUFFERIN [Concomitant]
  25. KETOPROFEN [Concomitant]
  26. ALL OTHER THERAPEUTIC PRODUCTS (ALL OTHER THERAPEUTIC PRODUCTS) [Concomitant]
  27. IBUDILAST (IBUDILAST) [Concomitant]
  28. ZONISAMIDE (ZONISAMIDE) [Concomitant]
  29. CYANOCOBALAMIN [Concomitant]
  30. ALL OTHER THERAPEUTIC PRODUCTS (ALL OTHER THERAPEUTIC PRODUCTS) [Concomitant]
  31. TAMSULOSIN HYDROCHLORIDE (TAMSULOSIN HYDROCHLORIDE) [Concomitant]
  32. SULPIRIDE (SULPIRIDE) [Concomitant]
  33. ALPRAZOLAM [Concomitant]
  34. ZOLPIDEM TARTRATE [Concomitant]
  35. QUAZEPAM [Concomitant]

REACTIONS (4)
  - CONDITION AGGRAVATED [None]
  - NEUROSIS [None]
  - RETINAL TEAR [None]
  - ROAD TRAFFIC ACCIDENT [None]
